FAERS Safety Report 17510557 (Version 3)
Quarter: 2020Q4

REPORT INFORMATION
  Report Type: Spontaneous
  Country: US (occurrence: US)
  Receive Date: 20200306
  Receipt Date: 20201008
  Transmission Date: 20210113
  Serious: Yes (Death, Other)
  Sender: FDA-Public Use
  Company Number: US-GILEAD-2020-0453659

PATIENT
  Age: 60 Year
  Sex: Male

DRUGS (2)
  1. ODEFSEY [Concomitant]
     Active Substance: EMTRICITABINE\RILPIVIRINE HYDROCHLORIDE\TENOFOVIR ALAFENAMIDE FUMARATE
     Dosage: UNK
     Route: 065
  2. ATRIPLA [Suspect]
     Active Substance: EFAVIRENZ\EMTRICITABINE\TENOFOVIR DISOPROXIL FUMARATE
     Indication: HIV INFECTION
     Dosage: UNK
     Route: 048
     Dates: start: 2006, end: 2016

REACTIONS (7)
  - Osteoporosis [Unknown]
  - Economic problem [Unknown]
  - Pain [Unknown]
  - Tooth loss [Recovered/Resolved]
  - Bone density decreased [Unknown]
  - Death [Fatal]
  - Emotional distress [Unknown]

NARRATIVE: CASE EVENT DATE: 2008
